FAERS Safety Report 18971639 (Version 4)
Quarter: 2021Q2

REPORT INFORMATION
  Report Type: Report from Study
  Country: None (occurrence: US)
  Receive Date: 20210304
  Receipt Date: 20210528
  Transmission Date: 20210717
  Serious: Yes (Hospitalization, Other)
  Sender: FDA-Public Use
  Company Number: US-ABBVIE-21K-163-3799800-00

PATIENT
  Age: 72 Year
  Sex: Male

DRUGS (2)
  1. HUMIRA [Suspect]
     Active Substance: ADALIMUMAB
     Indication: COLITIS ULCERATIVE
     Route: 058
     Dates: start: 2020, end: 20210201
  2. HUMIRA [Suspect]
     Active Substance: ADALIMUMAB
     Indication: CROHN^S DISEASE
     Route: 058
     Dates: start: 20201113, end: 20201113

REACTIONS (13)
  - Renal impairment [Recovered/Resolved]
  - Gastrointestinal infection [Unknown]
  - Large intestine perforation [Unknown]
  - Blood glucose increased [Recovered/Resolved]
  - Decreased appetite [Unknown]
  - Large intestinal obstruction [Unknown]
  - Large intestinal stenosis [Unknown]
  - Cardiovascular disorder [Unknown]
  - Pneumonia aspiration [Unknown]
  - Diverticulitis [Unknown]
  - Ischaemia [Unknown]
  - Asthenia [Unknown]
  - Weight decreased [Unknown]

NARRATIVE: CASE EVENT DATE: 20201214
